FAERS Safety Report 5594921-4 (Version None)
Quarter: 2007Q4

REPORT INFORMATION
  Report Type: 
  Country: None (occurrence: None)
  Receive Date: 20071218
  Receipt Date: 20070820
  Transmission Date: 20080405
  Serious: Yes (Hospitalization, Other)
  Sender: FDA-Public Use
  Company Number: 2007030858

PATIENT
  Sex: Female
  Weight: 83.9 kg

DRUGS (1)
  1. BEXTRA [Suspect]

REACTIONS (1)
  - PULMONARY EMBOLISM [None]
